FAERS Safety Report 17044235 (Version 2)
Quarter: 2019Q4

REPORT INFORMATION
  Report Type: Spontaneous
  Country: US (occurrence: US)
  Receive Date: 20191118
  Receipt Date: 20191203
  Transmission Date: 20200122
  Serious: No
  Sender: FDA-Public Use
  Company Number: US-VERTEX PHARMACEUTICALS-2019-011117

PATIENT
  Age: 15 Year
  Sex: Male
  Weight: 53 kg

DRUGS (8)
  1. VITAMIN D [COLECALCIFEROL] [Concomitant]
     Active Substance: CHOLECALCIFEROL
     Dosage: UNK
  2. PULMOZYME [Concomitant]
     Active Substance: DORNASE ALFA
     Dosage: UNK
  3. IPRATROPIUM [IPRATROPIUM BROMIDE] [Concomitant]
     Active Substance: IPRATROPIUM BROMIDE
     Dosage: UNK
     Route: 045
  4. LEVALBUTEROL [LEVOSALBUTAMOL] [Concomitant]
     Active Substance: LEVALBUTEROL
     Dosage: UNK
  5. CREON [Concomitant]
     Active Substance: PANCRELIPASE AMYLASE\PANCRELIPASE LIPASE\PANCRELIPASE PROTEASE
     Dosage: 12
  6. TRIKAFTA [Suspect]
     Active Substance: ELEXACAFTOR\IVACAFTOR\TEZACAFTOR
     Indication: CYSTIC FIBROSIS
     Dosage: HALF DOSAGE, BID
     Route: 048
     Dates: start: 20191101, end: 201911
  7. ARIKAYCE [Concomitant]
     Active Substance: AMIKACIN
     Dosage: UNK
  8. TRIKAFTA [Suspect]
     Active Substance: ELEXACAFTOR\IVACAFTOR\TEZACAFTOR
     Dosage: FULL DOSAGE, BID
     Route: 048
     Dates: start: 201911

REACTIONS (2)
  - Productive cough [Not Recovered/Not Resolved]
  - Hypoglycaemia [Recovered/Resolved]

NARRATIVE: CASE EVENT DATE: 201911
